FAERS Safety Report 13747583 (Version 1)
Quarter: 2017Q3

REPORT INFORMATION
  Report Type: Spontaneous
  Country: CN (occurrence: CN)
  Receive Date: 20170712
  Receipt Date: 20170712
  Transmission Date: 20171127
  Serious: Yes (Other)
  Sender: FDA-Public Use
  Company Number: CN-BAUSCH-BL-2017-021211

PATIENT
  Age: 47 Year
  Sex: Male

DRUGS (5)
  1. RETINOIC ACID [Suspect]
     Active Substance: TRETINOIN
     Indication: ACUTE MONOCYTIC LEUKAEMIA
     Dosage: INDUCTION CHEMOTHERAPY
     Route: 048
     Dates: start: 2009
  2. METHOTREXATE. [Concomitant]
     Active Substance: METHOTREXATE
     Indication: CHEMOTHERAPY
     Dates: start: 20090501, end: 20100309
  3. ACTINOMYCIN D [Concomitant]
     Active Substance: DACTINOMYCIN
     Indication: CHEMOTHERAPY
     Dates: start: 20090501, end: 20100309
  4. CYTARABINE. [Concomitant]
     Active Substance: CYTARABINE
     Indication: CHEMOTHERAPY
     Dates: start: 20090501, end: 20100309
  5. ETOPOSIDE. [Concomitant]
     Active Substance: ETOPOSIDE
     Indication: CHEMOTHERAPY
     Dates: start: 20090501, end: 20100309

REACTIONS (1)
  - Acute monocytic leukaemia [Not Recovered/Not Resolved]

NARRATIVE: CASE EVENT DATE: 20100811
